FAERS Safety Report 12093085 (Version 1)
Quarter: 2016Q1

REPORT INFORMATION
  Report Type: Spontaneous
  Country: US (occurrence: None)
  Receive Date: 20160218
  Receipt Date: 20160218
  Transmission Date: 20160526
  Serious: No
  Sender: FDA-Public Use
  Company Number: None

PATIENT
  Age: 72 Year
  Sex: Female
  Weight: 91.17 kg

DRUGS (14)
  1. ALLEGRA [Suspect]
     Active Substance: FEXOFENADINE HYDROCHLORIDE
     Indication: URTICARIA
     Dosage: 180MG 1 TAB DAILY PO
     Route: 048
     Dates: start: 20160113, end: 20160114
  2. ALLEGRA [Suspect]
     Active Substance: FEXOFENADINE HYDROCHLORIDE
     Indication: PRURITUS
     Dosage: 180MG 1 TAB DAILY PO
     Route: 048
     Dates: start: 20160113, end: 20160114
  3. LEVEMIR [Concomitant]
     Active Substance: INSULIN DETEMIR
  4. ALTACE [Concomitant]
     Active Substance: RAMIPRIL
  5. FLUOCENONIDE OINTMENT [Concomitant]
  6. ASA [Concomitant]
     Active Substance: ASPIRIN
  7. BENADRYL [Concomitant]
     Active Substance: DIPHENHYDRAMINE HYDROCHLORIDE
  8. ALICIEN SHAMPOO-SALICYLIC ACID [Concomitant]
  9. FLUOCINOLONE ACETONIDE. [Concomitant]
     Active Substance: FLUOCINOLONE ACETONIDE
  10. CRESTOR [Concomitant]
     Active Substance: ROSUVASTATIN CALCIUM
  11. COREG [Concomitant]
     Active Substance: CARVEDILOL
  12. CLOBETASOL [Concomitant]
     Active Substance: CLOBETASOL
  13. O2 [Concomitant]
  14. TYLENOL [Concomitant]
     Active Substance: ACETAMINOPHEN

REACTIONS (2)
  - Pruritus [None]
  - Rash macular [None]

NARRATIVE: CASE EVENT DATE: 20160210
